FAERS Safety Report 17174552 (Version 1)
Quarter: 2019Q4

REPORT INFORMATION
  Report Type: Report from Study
  Country: US (occurrence: US)
  Receive Date: 20191219
  Receipt Date: 20191219
  Transmission Date: 20200122
  Serious: Yes (Hospitalization, Other)
  Sender: FDA-Public Use
  Company Number: US-SEBELA IRELAND LIMITED-2019SEB00255

PATIENT
  Sex: Male
  Weight: 3.54 kg

DRUGS (9)
  1. INFLIXIMAB [Concomitant]
     Active Substance: INFLIXIMAB
     Dosage: 5 MG, 6X/YEAR
     Route: 064
     Dates: start: 20160526, end: 20170606
  2. PRILOSEC [Concomitant]
     Active Substance: OMEPRAZOLE MAGNESIUM
     Dosage: 2 DOSAGE UNITS, 1X/DAY
     Route: 064
     Dates: start: 20110817, end: 20170606
  3. MACROBID [Concomitant]
     Active Substance: NITROFURANTOIN\NITROFURANTOIN MONOHYDRATE
     Dosage: 100 MG, 2X/DAY
     Route: 064
     Dates: start: 20170301, end: 20170306
  4. AZATHIOPRINE. [Suspect]
     Active Substance: AZATHIOPRINE
     Dosage: 25 MG, 1X/DAY
     Route: 064
     Dates: start: 20161126, end: 20170606
  5. VITAMIN D WITH OMEGA 3 [Concomitant]
     Dosage: 4000 IU, 1X/DAY
     Route: 064
     Dates: start: 200911, end: 20170606
  6. HUMIRA [Suspect]
     Active Substance: ADALIMUMAB
     Dosage: 40 MG, 2X/MONTH
     Route: 064
     Dates: start: 20160127, end: 20160526
  7. ACETAMINOPHEN. [Concomitant]
     Active Substance: ACETAMINOPHEN
     Dosage: 500 MG, AS NEEDED
     Route: 064
     Dates: start: 20160526, end: 20170606
  8. FLONASE [Concomitant]
     Active Substance: FLUTICASONE PROPIONATE
     Dosage: 2 DOSAGE UNITS (SPRAYS), 1X/DAY
     Route: 064
     Dates: start: 20160307, end: 20170606
  9. FIORICET [Concomitant]
     Active Substance: ACETAMINOPHEN\BUTALBITAL\CAFFEINE
     Dosage: 1-2 TABS, UP TO 4X/DAY (EVERY 6 HOURS) AS NEEDED
     Route: 064
     Dates: start: 20160831, end: 20170606

REACTIONS (2)
  - Foetal exposure during pregnancy [Recovered/Resolved]
  - Pyloric stenosis [Unknown]
